FAERS Safety Report 11880440 (Version 2)
Quarter: 2016Q3

REPORT INFORMATION
  Report Type: Spontaneous
  Country: NZ (occurrence: NZ)
  Receive Date: 20151230
  Receipt Date: 20160826
  Transmission Date: 20161109
  Serious: Yes (Hospitalization, Other)
  Sender: FDA-Public Use
  Company Number: NZ-ELI_LILLY_AND_COMPANY-NZ201511005813

PATIENT
  Age: 24 Year
  Sex: Male

DRUGS (1)
  1. ZYPREXA RELPREVV [Suspect]
     Active Substance: OLANZAPINE PAMOATE
     Indication: PRODUCT USED FOR UNKNOWN INDICATION
     Dosage: 405 MG, UNK
     Route: 030
     Dates: start: 20151015, end: 20151118

REACTIONS (23)
  - Hypertension [Recovered/Resolved]
  - Aggression [Recovered/Resolved]
  - Dizziness [Recovered/Resolved]
  - Restlessness [Recovered/Resolved]
  - Overdose [Unknown]
  - Disorientation [Recovered/Resolved]
  - Paralysis [Recovered/Resolved]
  - Respiratory rate increased [Recovered/Resolved]
  - Speech disorder [Recovered/Resolved]
  - Agitation [Recovered/Resolved]
  - Anxiety [Recovered/Resolved]
  - Ataxia [Recovered/Resolved]
  - Confusional state [Recovered/Resolved]
  - Loss of consciousness [Recovered/Resolved]
  - Dysarthria [Recovered/Resolved]
  - Feeling drunk [Recovered/Resolved]
  - Balance disorder [Recovered/Resolved]
  - Gait disturbance [Recovered/Resolved]
  - Sedation [Recovered/Resolved]
  - Insomnia [Recovered/Resolved]
  - Pain [Recovered/Resolved]
  - Delirium [Recovered/Resolved]
  - Asthenia [Recovered/Resolved]

NARRATIVE: CASE EVENT DATE: 20151113
